FAERS Safety Report 8936132 (Version 1)
Quarter: 2012Q4

REPORT INFORMATION
  Report Type: 
  Country: US (occurrence: US)
  Receive Date: 20121130
  Receipt Date: 20121130
  Transmission Date: 20130627
  Serious: No
  Sender: FDA-Public Use
  Company Number: US-009507513-1211USA011982

PATIENT

DRUGS (3)
  1. MIRTAZAPINE [Suspect]
     Indication: SUBSTANCE ABUSE
     Dosage: UNK
  2. MIRTAZAPINE [Suspect]
     Indication: ANXIETY
  3. MIRTAZAPINE [Suspect]
     Indication: AFFECTIVE DISORDER

REACTIONS (1)
  - Sedation [Unknown]
